FAERS Safety Report 25581547 (Version 1)
Quarter: 2025Q3

REPORT INFORMATION
  Report Type: Spontaneous
  Country: US (occurrence: US)
  Receive Date: 20250719
  Receipt Date: 20250719
  Transmission Date: 20251021
  Serious: Yes (Hospitalization)
  Sender: COSETTE PHARMACEUTICALS INC
  Company Number: US-COSETTE-CP2025US000694

PATIENT
  Age: 68 Year
  Sex: Female

DRUGS (7)
  1. BENICAR [Suspect]
     Active Substance: OLMESARTAN MEDOXOMIL
     Indication: Product used for unknown indication
     Route: 065
     Dates: end: 202502
  2. RECORLEV [Suspect]
     Active Substance: LEVOKETOCONAZOLE
     Indication: Cushing^s syndrome
     Dosage: 2 TABLET/DAY
     Route: 048
     Dates: start: 20241211
  3. RECORLEV [Suspect]
     Active Substance: LEVOKETOCONAZOLE
     Route: 048
     Dates: start: 20250602
  4. SPIRONOLACTONE [Suspect]
     Active Substance: SPIRONOLACTONE
     Indication: Product used for unknown indication
     Route: 065
  5. METOPROLOL [Suspect]
     Active Substance: METOPROLOL
     Indication: Product used for unknown indication
     Route: 065
  6. TORSEMIDE [Suspect]
     Active Substance: TORSEMIDE
     Indication: Product used for unknown indication
     Route: 065
  7. POTASSIUM CHLORIDE [Concomitant]
     Active Substance: POTASSIUM CHLORIDE
     Indication: Product used for unknown indication
     Route: 065

REACTIONS (7)
  - Blood pressure abnormal [Not Recovered/Not Resolved]
  - Peripheral swelling [Unknown]
  - Pain [Unknown]
  - Headache [Unknown]
  - Acute kidney injury [Unknown]
  - Blood potassium increased [Unknown]
  - Alopecia [Unknown]

NARRATIVE: CASE EVENT DATE: 20250101
